FAERS Safety Report 19876077 (Version 2)
Quarter: 2024Q3

REPORT INFORMATION
  Report Type: Report from Study
  Country: US (occurrence: US)
  Receive Date: 20210924
  Receipt Date: 20240925
  Transmission Date: 20241017
  Serious: No
  Sender: GLAXOSMITHKLINE
  Company Number: US-GLAXOSMITHKLINE-US2021AMR200525

PATIENT
  Sex: Female

DRUGS (2)
  1. NIRAPARIB [Suspect]
     Active Substance: NIRAPARIB
     Indication: Ovarian cancer
     Dosage: 100 MG, QD
     Route: 048
     Dates: start: 20180901
  2. ELIQUIS [Concomitant]
     Active Substance: APIXABAN
     Indication: Ovarian cancer
     Dosage: UNK
     Dates: start: 2016

REACTIONS (2)
  - Insomnia [Not Recovered/Not Resolved]
  - White blood cell count decreased [Unknown]
